FAERS Safety Report 9317817 (Version 1)
Quarter: 2013Q2

REPORT INFORMATION
  Report Type: Spontaneous
  Country: US (occurrence: US)
  Receive Date: 20130530
  Receipt Date: 20130530
  Transmission Date: 20140414
  Serious: No
  Sender: FDA-Public Use
  Company Number: US-GLAXOSMITHKLINE-A0984455A

PATIENT
  Age: 71 Year
  Sex: Female

DRUGS (2)
  1. VENTOLIN [Suspect]
     Indication: ASTHMA
     Dosage: 2PUFF AS REQUIRED
     Route: 055
     Dates: start: 200807
  2. PREDNISONE [Concomitant]

REACTIONS (4)
  - Dyspnoea [Recovered/Resolved]
  - Ill-defined disorder [Unknown]
  - Therapeutic response decreased [Unknown]
  - Product quality issue [Unknown]
